FAERS Safety Report 23215350 (Version 1)
Quarter: 2023Q4

REPORT INFORMATION
  Report Type: Spontaneous
  Country: US (occurrence: US)
  Receive Date: 20231122
  Receipt Date: 20231122
  Transmission Date: 20240109
  Serious: No
  Sender: FDA-Public Use
  Company Number: US-APOTEX-2023AP013849

PATIENT
  Age: 63 Year
  Sex: Female

DRUGS (6)
  1. OLANZAPINE [Suspect]
     Active Substance: OLANZAPINE
     Indication: Substance-induced psychotic disorder
     Dosage: 10 MILLIGRAM, Q.H.S.
     Route: 048
  2. OLANZAPINE [Suspect]
     Active Substance: OLANZAPINE
     Dosage: 15 MILLIGRAM, Q.H.S.
     Route: 048
  3. OLANZAPINE [Suspect]
     Active Substance: OLANZAPINE
     Dosage: 10 MILLIGRAM, Q.H.S.
     Route: 048
  4. DULOXETINE [Concomitant]
     Active Substance: DULOXETINE
     Indication: Major depression
     Dosage: 60 MILLIGRAM, BID
     Route: 048
  5. TRAZODONE [Concomitant]
     Active Substance: TRAZODONE HYDROCHLORIDE
     Indication: Major depression
     Dosage: 150 MILLIGRAM, Q.H.S.
     Route: 048
  6. LITHIUM [Concomitant]
     Active Substance: LITHIUM
     Indication: Substance-induced psychotic disorder
     Dosage: 300 MILLIGRAM, BID
     Route: 048

REACTIONS (1)
  - Sedation [Unknown]
